FAERS Safety Report 8082283-2 (Version None)
Quarter: 2012Q1

REPORT INFORMATION
  Report Type: 
  Country: None (occurrence: None)
  Receive Date: 20120127
  Receipt Date: 20110216
  Transmission Date: 20120608
  Serious: No
  Sender: FDA-Public Use
  Company Number: US-ABBOTT-11P-163-0705581-00

PATIENT
  Age: 61 Year
  Sex: Male

DRUGS (8)
  1. MULTI-VITAMINS [Concomitant]
     Indication: VITAMIN SUPPLEMENTATION
     Dosage: NATURAL ANTIBIOTIC
  2. RESVERATROL [Concomitant]
     Indication: CARDIAC DISORDER
  3. COQ10 OIL [Concomitant]
     Indication: VITAMIN SUPPLEMENTATION
     Dosage: NATURAL ANTIBIOTIC
  4. TUMERIC EXTRACT [Concomitant]
     Indication: VITAMIN SUPPLEMENTATION
     Dosage: NATURAL ANTIBIOTIC
  5. HYDROCHLOROTHIAZIDE [Concomitant]
     Indication: BLOOD PRESSURE
  6. HUMIRA [Suspect]
     Indication: CROHN'S DISEASE
     Dates: start: 20101201
  7. OMEGA 3 OIL JELLY [Concomitant]
     Indication: VITAMIN SUPPLEMENTATION
     Dosage: NATURAL ANTIBIOTIC
  8. OIL OF OREGANO [Concomitant]
     Indication: VITAMIN SUPPLEMENTATION
     Dosage: NATURAL ANTIBIOTIC

REACTIONS (2)
  - THROAT IRRITATION [None]
  - COUGH [None]
